FAERS Safety Report 19654452 (Version 1)
Quarter: 2021Q3

REPORT INFORMATION
  Report Type: Spontaneous
  Country: RO (occurrence: RO)
  Receive Date: 20210804
  Receipt Date: 20210804
  Transmission Date: 20211014
  Serious: Yes (Other)
  Sender: FDA-Public Use
  Company Number: RO-SUN PHARMACEUTICAL INDUSTRIES LTD-2021RR-306583

PATIENT
  Age: 50 Year
  Sex: Male

DRUGS (7)
  1. ENOXAPARIN SODIUM. [Suspect]
     Active Substance: ENOXAPARIN SODIUM
     Indication: COVID-19
     Dosage: 6000 INTERNATIONAL UNIT, DAILY
     Route: 065
  2. ASPIRIN. [Suspect]
     Active Substance: ASPIRIN
     Indication: CEREBROVASCULAR ACCIDENT
     Dosage: 75 MILLIGRAM, DAILY
     Route: 065
  3. HYDROXYCHLOROQUINE [Suspect]
     Active Substance: HYDROXYCHLOROQUINE
     Indication: COVID-19
     Dosage: 800 UNK, DAILY
     Route: 065
  4. CLOPIDOGREL [Suspect]
     Active Substance: CLOPIDOGREL BISULFATE
     Indication: CEREBROVASCULAR ACCIDENT
     Dosage: 75 MILLIGRAM, DAILY
     Route: 065
  5. PARACETAMOL [Suspect]
     Active Substance: ACETAMINOPHEN
     Indication: COVID-19
     Dosage: 2 GRAM
     Route: 065
  6. LOPINAVIR/RITONAVIR [Suspect]
     Active Substance: LOPINAVIR\RITONAVIR
     Indication: COVID-19
     Dosage: UNK
     Route: 065
  7. ATORVASTATIN [Suspect]
     Active Substance: ATORVASTATIN
     Indication: CEREBROVASCULAR ACCIDENT
     Dosage: 40 MILLIGRAM, DAILY
     Route: 065

REACTIONS (3)
  - Ischaemic stroke [Recovering/Resolving]
  - Off label use [Unknown]
  - Subarachnoid haemorrhage [Recovering/Resolving]
